FAERS Safety Report 5479311-7 (Version None)
Quarter: 2007Q4

REPORT INFORMATION
  Report Type: 
  Country: None (occurrence: None)
  Receive Date: 20071003
  Receipt Date: 20070919
  Transmission Date: 20080405
  Serious: Yes (Hospitalization, Other)
  Sender: FDA-Public Use
  Company Number: 156961USA

PATIENT
  Age: 23 Year
  Sex: Male

DRUGS (8)
  1. FLUOXETINE HYDROCHLORIDE [Suspect]
     Indication: AFFECTIVE DISORDER
     Dosage: 60 MG/DAY INCREASED TO 80 MG/DAY (60 MG, 1 IN 1 D), ORAL
     Route: 048
  2. LINEZOLID [Suspect]
     Indication: BACTERIAL INFECTION
     Dosage: 1200 MG (600 MG, 2 IN 1 D), ORAL
     Route: 048
  3. CYTARABINE [Concomitant]
  4. METHADONE HCL [Concomitant]
  5. VORICONAZOLE [Concomitant]
  6. NICOTINE [Concomitant]
  7. LORAZEPAM [Concomitant]
  8. QUETIAPINE FUMARATE [Concomitant]

REACTIONS (9)
  - ABDOMINAL PAIN [None]
  - ACUTE MYELOID LEUKAEMIA [None]
  - AFFECTIVE DISORDER [None]
  - BACTERIAL INFECTION [None]
  - DRUG INTERACTION [None]
  - DYSPNOEA [None]
  - GAIT DISTURBANCE [None]
  - NEUTROPENIA [None]
  - SEROTONIN SYNDROME [None]
